FAERS Safety Report 23082816 (Version 1)
Quarter: 2023Q4

REPORT INFORMATION
  Report Type: Spontaneous
  Country: IT (occurrence: IT)
  Receive Date: 20231019
  Receipt Date: 20231019
  Transmission Date: 20240110
  Serious: Yes (Other)
  Sender: FDA-Public Use
  Company Number: IT-ROCHE-2588656

PATIENT
  Age: 43 Year
  Sex: Male

DRUGS (8)
  1. CAPECITABINE [Suspect]
     Active Substance: CAPECITABINE
     Indication: Acinar cell carcinoma of pancreas
     Dosage: FOR 14 DAY
     Dates: start: 201001, end: 201204
  2. CAPECITABINE [Suspect]
     Active Substance: CAPECITABINE
     Indication: Acinar cell carcinoma of pancreas
     Dosage: RESTARTED TREATMENT
     Dates: start: 201303
  3. CAPECITABINE [Suspect]
     Active Substance: CAPECITABINE
     Indication: Acinar cell carcinoma of pancreas
     Dosage: ANOTHER FOUR CYCLES OF CAPECITABINE UNTIL NOV/2012
     Dates: end: 201211
  4. GEMCITABINE [Suspect]
     Active Substance: GEMCITABINE
     Indication: Acinar cell carcinoma of pancreas
     Dosage: ON DAYS 1 AND 8
     Dates: start: 201001, end: 201204
  5. GEMCITABINE [Suspect]
     Active Substance: GEMCITABINE
     Indication: Acinar cell carcinoma of pancreas
     Dosage: RESTARTED TREATMENT
     Dates: start: 201303
  6. GEMCITABINE [Suspect]
     Active Substance: GEMCITABINE
     Indication: Acinar cell carcinoma of pancreas
     Dosage: ANOTHER FOUR CYCLES OF CAPECITABINE UNTIL NOV/2012
     Dates: end: 201211
  7. GEMCITABINE [Suspect]
     Active Substance: GEMCITABINE
     Indication: Acinar cell carcinoma of pancreas
     Dosage: IN A 14-D CYCLE
  8. OXALIPLATIN [Concomitant]
     Active Substance: OXALIPLATIN
     Dosage: IN A 14-D CYCLE

REACTIONS (3)
  - Neutropenia [Unknown]
  - Anaemia [Unknown]
  - Hepatic lesion [Recovered/Resolved]

NARRATIVE: CASE EVENT DATE: 20130301
